FAERS Safety Report 21237850 (Version 2)
Quarter: 2022Q3

REPORT INFORMATION
  Report Type: Spontaneous
  Country: PT (occurrence: PT)
  Receive Date: 20220822
  Receipt Date: 20220915
  Transmission Date: 20221026
  Serious: Yes (Other)
  Sender: FDA-Public Use
  Company Number: PT-CELLTRION HEALTHCARE HUNGARY KFT-2022PT012552

PATIENT
  Age: 30 Year
  Sex: Female

DRUGS (8)
  1. ENTYVIO [Suspect]
     Active Substance: VEDOLIZUMAB
     Indication: Behcet^s syndrome
     Dosage: UNK
     Route: 065
  2. METHOTREXATE [Suspect]
     Active Substance: METHOTREXATE
     Indication: Behcet^s syndrome
     Dosage: UNK
     Route: 065
  3. ADALIMUMAB [Suspect]
     Active Substance: ADALIMUMAB
     Indication: Colitis
     Dosage: UNK
     Route: 065
  4. ADALIMUMAB [Suspect]
     Active Substance: ADALIMUMAB
     Indication: Behcet^s syndrome
  5. INFLIXIMAB [Suspect]
     Active Substance: INFLIXIMAB
     Indication: Behcet^s syndrome
     Dosage: UNK
     Route: 065
  6. AZATHIOPRINE [Suspect]
     Active Substance: AZATHIOPRINE
     Indication: Behcet^s syndrome
     Dosage: 150 MILLIGRAM, QD
  7. PREDNISOLONE [Suspect]
     Active Substance: PREDNISOLONE
     Indication: Behcet^s syndrome
     Dosage: 7.5 MILLIGRAM, QD
     Route: 048
  8. USTEKINUMAB [Suspect]
     Active Substance: USTEKINUMAB
     Indication: Behcet^s syndrome
     Dosage: 90 MILLIGRAM, Q8WEEKS
     Route: 058

REACTIONS (12)
  - Renal impairment [Recovered/Resolved]
  - Cytomegalovirus infection [Unknown]
  - Behcet^s syndrome [Unknown]
  - Tubulointerstitial nephritis [Recovering/Resolving]
  - Mesangioproliferative glomerulonephritis [Unknown]
  - IgA nephropathy [Recovering/Resolving]
  - Cytomegalovirus colitis [Unknown]
  - Asthenia [Unknown]
  - Haematuria [Recovered/Resolved]
  - Therapy non-responder [Unknown]
  - Drug ineffective for unapproved indication [Unknown]
  - Off label use [Unknown]
